FAERS Safety Report 23463621 (Version 5)
Quarter: 2024Q2

REPORT INFORMATION
  Report Type: Report from Study
  Country: US (occurrence: US)
  Receive Date: 20240131
  Receipt Date: 20240624
  Transmission Date: 20240716
  Serious: No
  Sender: FDA-Public Use
  Company Number: US-ACADIA PHARMACEUTICALS INC.-ACA-2024-TRF-000051

PATIENT
  Age: 4 Year
  Sex: Female

DRUGS (4)
  1. DAYBUE [Suspect]
     Active Substance: TROFINETIDE
     Indication: Rett syndrome
     Dosage: 30 MILLILITER, BID
     Route: 048
     Dates: start: 20231216
  2. ERGOCALCIFEROL [Concomitant]
     Active Substance: ERGOCALCIFEROL
  3. VITAMIN C [Concomitant]
     Active Substance: ASCORBIC ACID
  4. DUPIXENT [Concomitant]
     Active Substance: DUPILUMAB

REACTIONS (9)
  - Intentional dose omission [Not Recovered/Not Resolved]
  - Retching [Not Recovered/Not Resolved]
  - Therapeutic product effect incomplete [Not Recovered/Not Resolved]
  - Faeces soft [Not Recovered/Not Resolved]
  - Product use complaint [Not Recovered/Not Resolved]
  - Diarrhoea [Not Recovered/Not Resolved]
  - Diarrhoea [Not Recovered/Not Resolved]
  - Diarrhoea [Not Recovered/Not Resolved]
  - Diarrhoea [Not Recovered/Not Resolved]

NARRATIVE: CASE EVENT DATE: 20231224
